FAERS Safety Report 15265118 (Version 1)
Quarter: 2018Q3

REPORT INFORMATION
  Report Type: Spontaneous
  Country: BR (occurrence: BR)
  Receive Date: 20180810
  Receipt Date: 20180810
  Transmission Date: 20181010
  Serious: Yes (Death, Hospitalization, Other)
  Sender: FDA-Public Use
  Company Number: BR-MYLANLABS-2018M1059778

PATIENT
  Age: 67 Year
  Sex: Male

DRUGS (3)
  1. PREDNISONE. [Suspect]
     Active Substance: PREDNISONE
     Indication: IMMUNOSUPPRESSANT DRUG THERAPY
     Route: 065
  2. EVEROLIMUS. [Suspect]
     Active Substance: EVEROLIMUS
     Indication: IMMUNOSUPPRESSANT DRUG THERAPY
     Route: 065
  3. TACROLIMUS. [Suspect]
     Active Substance: TACROLIMUS
     Indication: IMMUNOSUPPRESSANT DRUG THERAPY
     Route: 065

REACTIONS (12)
  - Delirium [Unknown]
  - Metabolic acidosis [Unknown]
  - Respiratory distress [Unknown]
  - Cryptosporidiosis infection [Unknown]
  - Cardiac arrest [Fatal]
  - Tachycardia [Unknown]
  - Depressed level of consciousness [Unknown]
  - Hypotension [Unknown]
  - Endocarditis bacterial [Fatal]
  - Granulicatella infection [Fatal]
  - Renal impairment [Recovering/Resolving]
  - Dehydration [Recovering/Resolving]
